FAERS Safety Report 6611255-7 (Version None)
Quarter: 2010Q1

REPORT INFORMATION
  Report Type: 
  Country: None (occurrence: None)
  Receive Date: 20100301
  Receipt Date: 20100301
  Transmission Date: 20100710
  Serious: No
  Sender: FDA-Public Use
  Company Number: None

PATIENT
  Sex: Male
  Weight: 32.1 kg

DRUGS (19)
  1. PREDNISONE [Suspect]
     Dosage: 864 MG
     Dates: end: 20100225
  2. VINCRISTINE SULFATE [Suspect]
     Dosage: 3.24 MG
     Dates: end: 20100219
  3. CYTARABINE [Suspect]
     Dosage: 70 MG
     Dates: end: 20100212
  4. DAUNORUBICIN HCL [Suspect]
     Dosage: 54 MG
     Dates: end: 20100219
  5. METHOTREXATE [Suspect]
     Dosage: 12 MG
     Dates: end: 20100219
  6. PEG-L-ASPARAGINASE (PEGASPARGASE, ONCOSPAR) [Suspect]
     Dosage: 2700 IU
     Dates: end: 20100215
  7. BACTRIM [Concomitant]
  8. D5 1/2 NS [Concomitant]
  9. SODIUM CHLORIDE [Concomitant]
  10. ACETAMINOPHEN [Concomitant]
  11. ACETAMINOPHEN W/ CODEINE [Concomitant]
  12. ALLOPURINOL [Concomitant]
  13. CEFEPIME [Concomitant]
  14. CHLORASEPTIC LOZENGE [Concomitant]
  15. MORPHINE [Concomitant]
  16. ONDANSETRON [Concomitant]
  17. OXYCODONE HCL [Concomitant]
  18. RANITIDINE [Concomitant]
  19. VANCOMYCIN [Concomitant]

REACTIONS (3)
  - BETA HAEMOLYTIC STREPTOCOCCAL INFECTION [None]
  - BLOOD CULTURE POSITIVE [None]
  - HYPERGLYCAEMIA [None]
